FAERS Safety Report 20421506 (Version 1)
Quarter: 2022Q1

REPORT INFORMATION
  Report Type: Report from Study
  Country: US (occurrence: US)
  Receive Date: 20220203
  Receipt Date: 20220203
  Transmission Date: 20220423
  Serious: Yes (Other)
  Sender: FDA-Public Use
  Company Number: US-BAYER-2022A015542

PATIENT
  Age: 63 Year
  Sex: Male

DRUGS (1)
  1. STIVARGA [Suspect]
     Active Substance: REGORAFENIB
     Indication: Colon cancer
     Dosage: 80 MG, QD FOR 21 DAYS THEN TAKE A 7 DAY BREAK
     Route: 048
     Dates: start: 20211126

REACTIONS (4)
  - Illness [Recovering/Resolving]
  - Immunodeficiency [Recovering/Resolving]
  - Diarrhoea [Recovering/Resolving]
  - Off label use [None]

NARRATIVE: CASE EVENT DATE: 20211126
